FAERS Safety Report 7401430-6 (Version None)
Quarter: 2011Q2

REPORT INFORMATION
  Report Type: 
  Country: None (occurrence: None)
  Receive Date: 20110407
  Receipt Date: 20110325
  Transmission Date: 20111010
  Serious: Yes (Hospitalization)
  Sender: FDA-Public Use
  Company Number: FR-MYLANLABS-2011S1006188

PATIENT
  Age: 47 Year
  Sex: Female

DRUGS (6)
  1. ZYPREXA [Suspect]
     Route: 060
     Dates: start: 20110120, end: 20110125
  2. ZYPREXA [Suspect]
     Indication: MAJOR DEPRESSION
     Route: 060
     Dates: start: 20110103, end: 20110120
  3. TERCIAN [Suspect]
     Route: 048
     Dates: start: 20110119, end: 20110119
  4. ALPRAZOLAM [Suspect]
     Indication: MAJOR DEPRESSION
     Route: 048
     Dates: start: 20110105
  5. TERCIAN [Suspect]
     Indication: MAJOR DEPRESSION
     Route: 048
     Dates: start: 20110105, end: 20110119
  6. TERCIAN [Suspect]
     Route: 048
     Dates: start: 20110119, end: 20110124

REACTIONS (1)
  - RHABDOMYOLYSIS [None]
